FAERS Safety Report 4445754-3 (Version None)
Quarter: 2004Q3

REPORT INFORMATION
  Report Type: 
  Country: None (occurrence: None)
  Receive Date: 20040910
  Receipt Date: 20040901
  Transmission Date: 20050211
  Serious: Yes (Death)
  Sender: FDA-Public Use
  Company Number: JP-JNJFOC-20040102852

PATIENT
  Sex: Female

DRUGS (12)
  1. FENTANYL [Suspect]
     Route: 062
  2. FENTANYL [Suspect]
     Route: 062
  3. FENTANYL [Suspect]
     Indication: CANCER PAIN
     Route: 062
  4. ALLOPURINOL [Concomitant]
     Route: 049
     Dates: start: 20010629, end: 20030606
  5. SODIUM BICARBONATE [Concomitant]
     Route: 049
     Dates: start: 20011012, end: 20030606
  6. MEDROXYPROGRESTERONE ACETATE [Concomitant]
     Route: 049
     Dates: start: 20020404, end: 20030607
  7. REBAMIPIDE [Concomitant]
     Route: 049
     Dates: start: 20020725, end: 20030603
  8. CALCIUM POLYSTYRENE SULFONATE [Concomitant]
     Route: 049
     Dates: start: 20021108, end: 20030606
  9. AZULENE [Concomitant]
     Route: 061
     Dates: start: 20030417, end: 20030609
  10. MAGNESIUM OXIDE [Concomitant]
     Route: 049
     Dates: start: 20030425, end: 20030606
  11. LOXOPROFEN SODIUM [Concomitant]
     Route: 049
     Dates: start: 20030523, end: 20030603
  12. INDOMETHACIN [Concomitant]
     Route: 054

REACTIONS (3)
  - MALIGNANT NEOPLASM PROGRESSION [None]
  - MALIGNANT PLEURAL EFFUSION [None]
  - PLEURAL EFFUSION [None]
